FAERS Safety Report 5953526-3 (Version None)
Quarter: 2008Q4

REPORT INFORMATION
  Report Type: 
  Country: None (occurrence: None)
  Receive Date: 20081114
  Receipt Date: 20081107
  Transmission Date: 20090506
  Serious: Yes (Other)
  Sender: FDA-Public Use
  Company Number: PHHY2008BR27768

PATIENT
  Sex: Female

DRUGS (1)
  1. PARLODEL [Suspect]
     Dosage: 2.5 MG, UNK
     Dates: start: 20081031

REACTIONS (8)
  - ABDOMINAL PAIN [None]
  - BLOOD PRESSURE DECREASED [None]
  - BURNING SENSATION [None]
  - PALLOR [None]
  - PERIPHERAL COLDNESS [None]
  - TREMOR [None]
  - URINARY TRACT INFECTION [None]
  - VOMITING [None]
